FAERS Safety Report 6840401-5 (Version None)
Quarter: 2010Q3

REPORT INFORMATION
  Report Type: 
  Country: None (occurrence: None)
  Receive Date: 20100714
  Receipt Date: 20100705
  Transmission Date: 20110219
  Serious: Yes (Hospitalization)
  Sender: FDA-Public Use
  Company Number: JP-PFIZER INC-2009297215

PATIENT
  Age: 58 Year
  Sex: Male
  Weight: 58.8 kg

DRUGS (5)
  1. SUNITINIB MALATE [Suspect]
     Indication: METASTATIC RENAL CELL CARCINOMA
     Dosage: 50 MG, 1X/DAY
     Route: 048
     Dates: start: 20091019
  2. URSO 250 [Concomitant]
     Dosage: 200 MG, 4X/DAY
     Route: 048
  3. MUCOSTA [Concomitant]
     Indication: GASTRITIS
     Dosage: 100 MG, 3X/DAY
     Route: 048
  4. MICARDIS [Concomitant]
     Dosage: 40 MG, 1X/DAY
     Route: 048
     Dates: start: 20091229
  5. THYRADIN [Concomitant]
     Dosage: 25 UG, 1X/DAY
     Route: 048
     Dates: start: 20091229

REACTIONS (2)
  - APPENDICEAL ABSCESS [None]
  - APPENDICITIS [None]
